FAERS Safety Report 16268898 (Version 2)
Quarter: 2019Q2

REPORT INFORMATION
  Report Type: Report from Study
  Country: None (occurrence: CA)
  Receive Date: 20190503
  Receipt Date: 20190507
  Transmission Date: 20190711
  Serious: Yes (Hospitalization, Other)
  Sender: FDA-Public Use
  Company Number: CA-ABBVIE-19K-028-2763100-00

PATIENT
  Sex: Male

DRUGS (1)
  1. HUMIRA [Suspect]
     Active Substance: ADALIMUMAB
     Indication: CROHN^S DISEASE
     Route: 058
     Dates: start: 20180601

REACTIONS (14)
  - Secretion discharge [Unknown]
  - Gastrointestinal inflammation [Unknown]
  - Colitis [Unknown]
  - Anal abscess [Unknown]
  - Ulcer [Unknown]
  - Anorectal swelling [Unknown]
  - Fistula discharge [Not Recovered/Not Resolved]
  - Irritable bowel syndrome [Not Recovered/Not Resolved]
  - Gastrointestinal disorder [Unknown]
  - Diarrhoea [Unknown]
  - Gastrointestinal mucosa hyperaemia [Unknown]
  - Drain placement [Unknown]
  - Intestinal ulcer [Unknown]
  - Erythema [Unknown]
